FAERS Safety Report 9350205 (Version 1)
Quarter: 2013Q2

REPORT INFORMATION
  Report Type: Spontaneous
  Country: US (occurrence: US)
  Receive Date: 20130617
  Receipt Date: 20130617
  Transmission Date: 20140414
  Serious: No
  Sender: FDA-Public Use
  Company Number: US-ASTRAZENECA-2013SE41859

PATIENT
  Sex: Female

DRUGS (3)
  1. SYMBICORT [Suspect]
     Indication: ASTHMA
     Dosage: 160 MCG/ 4.5 MCG, 2 PUFFS, BID
     Route: 055
     Dates: start: 20130509
  2. SYMBICORT [Suspect]
     Indication: COUGH
     Dosage: 160 MCG/ 4.5 MCG, 2 PUFFS, BID
     Route: 055
     Dates: start: 20130509
  3. OTHER INHALERS [Concomitant]
     Route: 055

REACTIONS (4)
  - Increased upper airway secretion [Unknown]
  - Adverse drug reaction [Unknown]
  - Cough [Unknown]
  - Circumstance or information capable of leading to medication error [Unknown]
